FAERS Safety Report 13571022 (Version 2)
Quarter: 2017Q4

REPORT INFORMATION
  Report Type: Report from Study
  Country: US (occurrence: US)
  Receive Date: 20170523
  Receipt Date: 20171130
  Transmission Date: 20180320
  Serious: Yes (Hospitalization)
  Sender: FDA-Public Use
  Company Number: US-ACADIA PHARMACEUTICALS INC.-ACA-2017-003495

PATIENT
  Sex: Male

DRUGS (3)
  1. NUPLAZID [Suspect]
     Active Substance: PIMAVANSERIN TARTRATE
     Indication: PARKINSON^S DISEASE PSYCHOSIS
     Dosage: 34 MG, QD
     Route: 048
     Dates: end: 2017
  2. NUPLAZID [Suspect]
     Active Substance: PIMAVANSERIN TARTRATE
     Indication: DELUSION
     Dosage: 17 MG, QD
     Dates: start: 20171120
  3. NUPLAZID [Suspect]
     Active Substance: PIMAVANSERIN TARTRATE
     Indication: HALLUCINATION
     Dosage: 34 MG, QD
     Route: 048

REACTIONS (4)
  - Back disorder [Not Recovered/Not Resolved]
  - Hallucination [Unknown]
  - Fall [Not Recovered/Not Resolved]
  - Nonspecific reaction [Unknown]

NARRATIVE: CASE EVENT DATE: 2017
